FAERS Safety Report 19628292 (Version 1)
Quarter: 2021Q3

REPORT INFORMATION
  Report Type: Spontaneous
  Country: US (occurrence: US)
  Receive Date: 20210729
  Receipt Date: 20210729
  Transmission Date: 20211014
  Serious: Yes (Other)
  Sender: FDA-Public Use
  Company Number: US-ASTRAZENECA-2021A634969

PATIENT
  Sex: Male

DRUGS (1)
  1. QTERNMET XR [Suspect]
     Active Substance: DAPAGLIFLOZIN\METFORMIN HYDROCHLORIDE\SAXAGLIPTIN HYDROCHLORIDE
     Route: 048

REACTIONS (2)
  - Erectile dysfunction [Unknown]
  - Priapism [Unknown]

NARRATIVE: CASE EVENT DATE: 20210319
